FAERS Safety Report 19191399 (Version 1)
Quarter: 2021Q2

REPORT INFORMATION
  Report Type: Spontaneous
  Country: AT (occurrence: AT)
  Receive Date: 20210428
  Receipt Date: 20210428
  Transmission Date: 20210717
  Serious: Yes (Hospitalization)
  Sender: FDA-Public Use
  Company Number: AT-ORGANON-O2104AUT002205

PATIENT
  Age: 66 Year
  Sex: Male

DRUGS (2)
  1. MOMETASONE FUROATE. [Suspect]
     Active Substance: MOMETASONE FUROATE
     Indication: PRODUCT USED FOR UNKNOWN INDICATION
     Dosage: UNK
     Route: 065
  2. SYMBICORT [Concomitant]
     Active Substance: BUDESONIDE\FORMOTEROL FUMARATE DIHYDRATE
     Indication: PRODUCT USED FOR UNKNOWN INDICATION
     Dosage: UNK (INHALER)
     Route: 065

REACTIONS (5)
  - Upper-airway cough syndrome [Recovering/Resolving]
  - Dyspnoea [Recovering/Resolving]
  - Anosmia [Recovering/Resolving]
  - Nasal congestion [Recovering/Resolving]
  - Drug ineffective [Unknown]
